FAERS Safety Report 5106039-5 (Version None)
Quarter: 2006Q3

REPORT INFORMATION
  Report Type: 
  Country: None (occurrence: None)
  Receive Date: 20060915
  Receipt Date: 20060906
  Transmission Date: 20061208
  Serious: Yes (Congenital Anomaly, Other)
  Sender: FDA-Public Use
  Company Number: US-ABBOTT-06P-163-0343128-00

PATIENT
  Age: 1 Day
  Sex: Male
  Weight: 3.108 kg

DRUGS (2)
  1. DEPAKOTE [Suspect]
     Indication: DRUG EXPOSURE DURING PREGNANCY
  2. LAMOTRIGINE [Suspect]
     Indication: DRUG EXPOSURE DURING PREGNANCY

REACTIONS (5)
  - DACRYOSTENOSIS CONGENITAL [None]
  - DRUG EXPOSURE DURING PREGNANCY [None]
  - HYPOSPADIAS [None]
  - LUNG INJURY [None]
  - UTERINE HAEMORRHAGE [None]
